FAERS Safety Report 8935555 (Version 1)
Quarter: 2012Q4

REPORT INFORMATION
  Report Type: 
  Country: MX (occurrence: MX)
  Receive Date: 20121130
  Receipt Date: 20121130
  Transmission Date: 20130627
  Serious: Yes (Hospitalization, Other)
  Sender: FDA-Public Use
  Company Number: PHHY2012MX109328

PATIENT
  Age: 74 Year
  Sex: Female

DRUGS (2)
  1. CO-DIOVAN [Suspect]
     Indication: HYPERTENSION
     Dosage: 1 DF, UNK
     Route: 048
     Dates: start: 20120518, end: 201209
  2. EVIPRESS [Concomitant]
     Dosage: 1 DF, UNK
     Dates: start: 201206

REACTIONS (2)
  - Fluid retention [Recovered/Resolved]
  - Blood pressure increased [Recovered/Resolved]
